FAERS Safety Report 18021491 (Version 1)
Quarter: 2020Q3

REPORT INFORMATION
  Report Type: Spontaneous
  Country: FR (occurrence: FR)
  Receive Date: 20200714
  Receipt Date: 20200714
  Transmission Date: 20201103
  Serious: Yes (Other)
  Sender: FDA-Public Use
  Company Number: FR-US-PROVELL PHARMACEUTICALS LLC-9013440

PATIENT
  Age: 56 Year
  Sex: Female

DRUGS (3)
  1. LEVOTHYROX [Suspect]
     Active Substance: LEVOTHYROXINE
     Indication: POST PROCEDURAL HYPOTHYROIDISM
  2. LAMICTAL [Concomitant]
     Active Substance: LAMOTRIGINE
     Indication: PRODUCT USED FOR UNKNOWN INDICATION
  3. NARAMIG [Concomitant]
     Active Substance: NARATRIPTAN HYDROCHLORIDE
     Indication: PRODUCT USED FOR UNKNOWN INDICATION

REACTIONS (31)
  - Feeling abnormal [Unknown]
  - Reading disorder [Unknown]
  - Loss of personal independence in daily activities [Unknown]
  - Social avoidant behaviour [Unknown]
  - Stress [Unknown]
  - Tremor [Unknown]
  - Suicidal ideation [Unknown]
  - Dyspnoea [Unknown]
  - Somnolence [Unknown]
  - Heart rate increased [Unknown]
  - Thyroxine free increased [Unknown]
  - Tachycardia [Unknown]
  - Blood thyroid stimulating hormone decreased [Unknown]
  - Fatigue [Recovering/Resolving]
  - Dizziness [Unknown]
  - Anxiety [Unknown]
  - Hypokinesia [Unknown]
  - Discomfort [Unknown]
  - Grip strength decreased [Unknown]
  - Crying [Unknown]
  - Asthenia [Unknown]
  - Muscular weakness [Unknown]
  - Weight decreased [Unknown]
  - Headache [Recovering/Resolving]
  - Feeling hot [Unknown]
  - Depression [Unknown]
  - Thyroglobulin decreased [Unknown]
  - Sleep disorder [Unknown]
  - Disturbance in attention [Unknown]
  - Migraine [Unknown]
  - Nausea [Unknown]

NARRATIVE: CASE EVENT DATE: 201705
